FAERS Safety Report 24383926 (Version 1)
Quarter: 2024Q4

REPORT INFORMATION
  Report Type: Spontaneous
  Country: US (occurrence: US)
  Receive Date: 20241001
  Receipt Date: 20241001
  Transmission Date: 20250115
  Serious: No
  Sender: ELI LILLY AND CO
  Company Number: US-ELI_LILLY_AND_COMPANY-US202409017415

PATIENT
  Age: 62 Year
  Sex: Male

DRUGS (8)
  1. HUMALOG [Suspect]
     Active Substance: INSULIN LISPRO
     Indication: Type 2 diabetes mellitus
     Dosage: 4 U, OTHER (BEFORE EVERY MEAL)
     Route: 058
     Dates: start: 202407
  2. HUMALOG [Suspect]
     Active Substance: INSULIN LISPRO
     Indication: Type 2 diabetes mellitus
     Dosage: 4 U, OTHER (BEFORE EVERY MEAL)
     Route: 058
     Dates: start: 202407
  3. HUMALOG [Suspect]
     Active Substance: INSULIN LISPRO
     Dosage: 8 U, OTHER (BEFORE EVERY MEAL)
     Route: 058
  4. HUMALOG [Suspect]
     Active Substance: INSULIN LISPRO
     Dosage: 8 U, OTHER (BEFORE EVERY MEAL)
     Route: 058
  5. HUMALOG [Suspect]
     Active Substance: INSULIN LISPRO
     Dosage: 12 U, OTHER (BEFORE EVERY MEAL)
     Route: 058
  6. HUMALOG [Suspect]
     Active Substance: INSULIN LISPRO
     Dosage: 12 U, OTHER (BEFORE EVERY MEAL)
     Route: 058
  7. HUMALOG [Suspect]
     Active Substance: INSULIN LISPRO
     Dosage: 15 U, OTHER (BEFORE EVERY MEAL)
     Route: 058
  8. HUMALOG [Suspect]
     Active Substance: INSULIN LISPRO
     Dosage: 15 U, OTHER (BEFORE EVERY MEAL)
     Route: 058

REACTIONS (3)
  - Glycosylated haemoglobin increased [Not Recovered/Not Resolved]
  - Blood glucose increased [Not Recovered/Not Resolved]
  - Drug ineffective [Not Recovered/Not Resolved]
